FAERS Safety Report 8828612 (Version 1)
Quarter: 2012Q4

REPORT INFORMATION
  Report Type: 
  Country: ES (occurrence: ES)
  Receive Date: 20121005
  Receipt Date: 20121005
  Transmission Date: 20130627
  Serious: Yes (Other)
  Sender: FDA-Public Use
  Company Number: ES-AMGEN-ESPSP2012005021

PATIENT
  Age: 71 Year
  Sex: Female
  Weight: 147.7 kg

DRUGS (5)
  1. PROLIA [Suspect]
     Indication: OSTEOPOROSIS
     Dosage: 60 mg, one time dose
     Route: 058
     Dates: start: 201112
  2. VITAMIN D [Concomitant]
     Dosage: UNK UNK, qmo
  3. CALCIUM [Concomitant]
     Dosage: UNK UNK, qd
  4. IDEOS [Concomitant]
     Indication: OSTEOPOROSIS
     Dosage: UNK UNK, qd
     Route: 048
  5. OSVICAL [Concomitant]
     Indication: OSTEOPOROSIS
     Dosage: UNK UNK, qd
     Route: 048

REACTIONS (3)
  - Ventricular tachycardia [Recovered/Resolved]
  - Palpitations [Recovered/Resolved]
  - Tachycardia [Recovered/Resolved]
